FAERS Safety Report 9440684 (Version 2)
Quarter: 2013Q3

REPORT INFORMATION
  Report Type: Spontaneous
  Country: US (occurrence: US)
  Receive Date: 20130805
  Receipt Date: 20130911
  Transmission Date: 20140515
  Serious: Yes (Other)
  Sender: FDA-Public Use
  Company Number: US-PFIZER INC-2013225118

PATIENT
  Age: 64 Year
  Sex: Male

DRUGS (1)
  1. METHOTREXATE SODIUM [Suspect]
     Dosage: 10 MG, WEEKLY

REACTIONS (3)
  - Non-alcoholic steatohepatitis [Unknown]
  - Liver function test abnormal [Unknown]
  - Drug hypersensitivity [Unknown]
